FAERS Safety Report 4693995-2 (Version None)
Quarter: 2005Q2

REPORT INFORMATION
  Report Type: 
  Country: None (occurrence: None)
  Receive Date: 20050616
  Receipt Date: 20050607
  Transmission Date: 20051028
  Serious: Yes (Hospitalization)
  Sender: FDA-Public Use
  Company Number: 163-20785-05060126

PATIENT
  Age: 59 Year
  Sex: Male
  Weight: 78.0187 kg

DRUGS (1)
  1. THALOMID [Suspect]
     Indication: SMALL CELL LUNG CANCER STAGE UNSPECIFIED
     Dosage: 200 MG, DAILY, ORAL
     Route: 048
     Dates: start: 20050329, end: 20050418

REACTIONS (6)
  - BIOPSY SPINAL CORD ABNORMAL [None]
  - MYELITIS [None]
  - NECROSIS [None]
  - PARAPLEGIA [None]
  - SENSORY DISTURBANCE [None]
  - URINARY RETENTION [None]
